FAERS Safety Report 17530296 (Version 1)
Quarter: 2020Q1

REPORT INFORMATION
  Report Type: Spontaneous
  Country: FR (occurrence: FR)
  Receive Date: 20200312
  Receipt Date: 20200312
  Transmission Date: 20200409
  Serious: Yes (Hospitalization, Other)
  Sender: FDA-Public Use
  Company Number: FR-BIOGEN-2020BI00847198

PATIENT
  Sex: Female

DRUGS (3)
  1. TECFIDERA [Suspect]
     Active Substance: DIMETHYL FUMARATE
     Indication: PRODUCT USED FOR UNKNOWN INDICATION
     Dosage: 2 PILLS IN MORNING/2 IN THE EVENING
     Route: 048
     Dates: start: 20140615
  2. GARDASIL [Suspect]
     Active Substance: HUMAN PAPILLOMAVIRUS QUADRIVALENT (TYPES 6, 11, 16, AND 18) VACCINE, RECOMBINANT
     Indication: PROPHYLAXIS
     Route: 065
     Dates: start: 20080711
  3. REBIF [Suspect]
     Active Substance: INTERFERON BETA-1A
     Indication: PRODUCT USED FOR UNKNOWN INDICATION
     Dosage: 44 UNK 3/WEEK
     Route: 065
     Dates: start: 20120104, end: 20140615

REACTIONS (22)
  - Irritability [Unknown]
  - Nasopharyngitis [Unknown]
  - Flushing [Recovered/Resolved]
  - Bronchitis [Unknown]
  - Hormone level abnormal [Unknown]
  - Poor peripheral circulation [Unknown]
  - Amenorrhoea [Unknown]
  - Stress fracture [Unknown]
  - Malaise [Unknown]
  - Tendonitis [Unknown]
  - Multiple sclerosis [Not Recovered/Not Resolved]
  - Tinnitus [Unknown]
  - Cervicobrachial syndrome [Unknown]
  - Injection site haematoma [Unknown]
  - Crying [Unknown]
  - Mood swings [Unknown]
  - Immunodeficiency [Unknown]
  - Fungal infection [Unknown]
  - Skin disorder [Recovered/Resolved]
  - Constipation [Not Recovered/Not Resolved]
  - Fluid retention [Unknown]
  - Hypothyroidism [Unknown]

NARRATIVE: CASE EVENT DATE: 200807
